FAERS Safety Report 16441287 (Version 2)
Quarter: 2019Q3

REPORT INFORMATION
  Report Type: Spontaneous
  Country: US (occurrence: US)
  Receive Date: 20190617
  Receipt Date: 20190708
  Transmission Date: 20191004
  Serious: No
  Sender: FDA-Public Use
  Company Number: US-PFIZER INC-2019256729

PATIENT
  Age: 53 Year
  Sex: Female
  Weight: 90.7 kg

DRUGS (1)
  1. GABAPENTIN. [Suspect]
     Active Substance: GABAPENTIN
     Indication: FIBROMYALGIA
     Dosage: UNK

REACTIONS (5)
  - Fatigue [Unknown]
  - Somnolence [Unknown]
  - Product use in unapproved indication [Unknown]
  - Off label use [Unknown]
  - Loss of personal independence in daily activities [Unknown]
